FAERS Safety Report 6325631-3 (Version None)
Quarter: 2009Q3

REPORT INFORMATION
  Report Type: 
  Country: None (occurrence: None)
  Receive Date: 20090824
  Receipt Date: 20090720
  Transmission Date: 20100115
  Serious: No
  Sender: FDA-Public Use
  Company Number: US-ABBOTT-09P-163-0586892-00

PATIENT
  Age: 64 Year
  Sex: Male
  Weight: 80.358 kg

DRUGS (5)
  1. NIASPAN [Suspect]
     Indication: HIGH DENSITY LIPOPROTEIN DECREASED
     Route: 048
     Dates: start: 20040101
  2. NIASPAN [Suspect]
     Route: 048
     Dates: start: 20090101, end: 20090301
  3. NIASPAN [Suspect]
     Route: 048
     Dates: start: 20090301, end: 20090703
  4. NIASPAN [Suspect]
     Route: 048
  5. NIACIN [Concomitant]
     Indication: HIGH DENSITY LIPOPROTEIN DECREASED
     Dosage: OVER THE COUNTER

REACTIONS (3)
  - FLUSHING [None]
  - HIGH DENSITY LIPOPROTEIN DECREASED [None]
  - INCORRECT DRUG ADMINISTRATION DURATION [None]
